FAERS Safety Report 16466431 (Version 1)
Quarter: 2019Q2

REPORT INFORMATION
  Report Type: Spontaneous
  Country: ES (occurrence: ES)
  Receive Date: 20190622
  Receipt Date: 20190622
  Transmission Date: 20190711
  Serious: Yes (Life-Threatening, Hospitalization)
  Sender: FDA-Public Use
  Company Number: ES-ACCORD-134082

PATIENT
  Age: 61 Year
  Sex: Male

DRUGS (6)
  1. DOXORUBICIN [Interacting]
     Active Substance: DOXORUBICIN
     Indication: B-CELL LYMPHOMA
     Dosage: 18.5 G IN PATIENT, DAYS 2-4 OF THE CYCLE
     Route: 041
     Dates: start: 20150709, end: 20151024
  2. METHOTREXATE. [Interacting]
     Active Substance: METHOTREXATE
     Indication: B-CELL LYMPHOMA
     Dosage: TOTAL DOSE 9098.6 MG,IN TWO DOSES 28/11/2015-14/12/2015
     Route: 042
     Dates: start: 20151128, end: 20151214
  3. CYCLOPHOSPHAMIDE/CYCLOPHOSPHAMIDE MONOHYDRATE [Interacting]
     Active Substance: CYCLOPHOSPHAMIDE
     Indication: B-CELL LYMPHOMA
     Dosage: 1387.5 MG DAY 5 OF CYCLE
     Route: 042
     Dates: start: 20150712, end: 20151025
  4. ETOPOSIDE. [Suspect]
     Active Substance: ETOPOSIDE
     Indication: B-CELL LYMPHOMA
     Dosage: 6 CYCLES, IN PATIENT DAYS 2-4 OF THE CYCLE
     Route: 041
     Dates: start: 20150709, end: 20151024
  5. VINCRISTINE [Interacting]
     Active Substance: VINCRISTINE
     Indication: B-CELL LYMPHOMA
     Dosage: 6 CYCLES,IN PATIENT,DAYS 2-4 OF THE CYCLE DATE OF LAST ADMINISTRATION 24-OCT-2015
     Route: 041
     Dates: start: 20150709
  6. RITUXIMAB. [Interacting]
     Active Substance: RITUXIMAB
     Indication: B-CELL LYMPHOMA
     Dosage: 693.75 MG 6 CYCLES
     Route: 042
     Dates: start: 20150708, end: 20151021

REACTIONS (2)
  - Drug interaction [Unknown]
  - Acute myeloid leukaemia [Recovered/Resolved with Sequelae]

NARRATIVE: CASE EVENT DATE: 20160508
